FAERS Safety Report 5896095-9 (Version None)
Quarter: 2008Q3

REPORT INFORMATION
  Report Type: 
  Country: None (occurrence: None)
  Receive Date: 20080924
  Receipt Date: 20080911
  Transmission Date: 20090109
  Serious: Yes (Other)
  Sender: FDA-Public Use
  Company Number: GB-BAUSCH-2008BL003957

PATIENT
  Age: 69 Year
  Sex: Female

DRUGS (4)
  1. ATROPINE [Suspect]
     Indication: CYCLOPLEGIA
     Route: 047
  2. ATROPINE [Suspect]
     Indication: EYE INFLAMMATION
     Route: 047
  3. BETAXOLOL [Concomitant]
     Indication: GLAUCOMA
  4. DORZOLAMIDE [Concomitant]
     Indication: GLAUCOMA

REACTIONS (2)
  - ANGLE CLOSURE GLAUCOMA [None]
  - DRUG INEFFECTIVE FOR UNAPPROVED INDICATION [None]
